FAERS Safety Report 20518727 (Version 2)
Quarter: 2022Q1

REPORT INFORMATION
  Report Type: Spontaneous
  Country: US (occurrence: US)
  Receive Date: 20220225
  Receipt Date: 20220310
  Transmission Date: 20220423
  Serious: No
  Sender: FDA-Public Use
  Company Number: US-SA-SAC20220221001003

PATIENT
  Sex: Female

DRUGS (2)
  1. AUBAGIO [Suspect]
     Active Substance: TERIFLUNOMIDE
     Indication: Multiple sclerosis
     Dosage: 14 MG, QD
     Route: 048
     Dates: start: 20211002
  2. FINGOLIMOD [Suspect]
     Active Substance: FINGOLIMOD
     Dosage: UNK

REACTIONS (9)
  - Influenza like illness [Unknown]
  - Pruritus [Unknown]
  - Hyperhidrosis [Unknown]
  - Diarrhoea [Unknown]
  - Alopecia [Unknown]
  - Headache [Unknown]
  - Constipation [Unknown]
  - Therapeutic response decreased [Unknown]
  - Supraventricular tachycardia [Unknown]
